FAERS Safety Report 9667775 (Version 3)
Quarter: 2013Q4

REPORT INFORMATION
  Report Type: Report from Study
  Country: US (occurrence: US)
  Receive Date: 20131104
  Receipt Date: 20131218
  Transmission Date: 20140711
  Serious: Yes (Hospitalization)
  Sender: FDA-Public Use
  Company Number: US-PFIZER INC-2013310318

PATIENT
  Age: 51 Year
  Sex: Female
  Weight: 66.58 kg

DRUGS (18)
  1. DILANTIN-125 [Suspect]
     Indication: COMPLEX PARTIAL SEIZURES
     Dosage: 400 MG, 1X/DAY
     Route: 048
     Dates: start: 20130626, end: 20130626
  2. DILANTIN-125 [Suspect]
     Dosage: 300 MG, 2X/DAY
     Route: 048
     Dates: start: 20130726, end: 20130726
  3. DILANTIN-125 [Suspect]
     Dosage: 300 MG, HS
     Route: 048
     Dates: start: 20130727
  4. DILANTIN-125 [Suspect]
     Dosage: 400 MG, 1X/DAY
     Route: 048
     Dates: start: 20130803
  5. DILANTIN-125 [Suspect]
     Dosage: 100 MG, HS
     Route: 048
     Dates: start: 20130807, end: 20130807
  6. DILANTIN-125 [Suspect]
     Dosage: 100 MG, 3X/DAY
     Route: 048
     Dates: start: 20130808
  7. ESLICARBAZEPINE ACETATE [Suspect]
     Indication: COMPLEX PARTIAL SEIZURES
     Dosage: 1600 MG, 1X/DAY
     Route: 048
     Dates: start: 20130110, end: 20130407
  8. ESLICARBAZEPINE ACETATE [Suspect]
     Dosage: 2000 MG, 1X/DAY
     Route: 048
     Dates: start: 20130408, end: 20130616
  9. ESLICARBAZEPINE ACETATE [Suspect]
     Dosage: 2400 MG, 1X/DAY
     Route: 048
     Dates: start: 20130617, end: 20130730
  10. LEVETIRACETAM [Concomitant]
     Dosage: UNK
     Dates: start: 20130609, end: 20130609
  11. LEXAPRO [Concomitant]
     Dosage: UNK
     Dates: start: 20130626
  12. CELEXA [Concomitant]
     Dosage: UNK
  13. FERROUS SULFATE [Concomitant]
     Indication: ANAEMIA
     Dosage: UNK
     Dates: start: 20130425
  14. TEGRETOL [Concomitant]
     Dosage: UNK
     Dates: end: 20130802
  15. BLINDED THERAPY (PREV) [Concomitant]
     Dosage: UNK
     Dates: start: 20120906, end: 20130109
  16. TYLENOL SINUS [Concomitant]
     Dosage: UNK
     Dates: start: 20121116
  17. ZYRTEC [Concomitant]
     Dosage: UNK
     Dates: start: 20130404
  18. CROMOLYN [Concomitant]
     Indication: SEASONAL ALLERGY
     Dosage: UNK
     Dates: start: 20130425

REACTIONS (2)
  - Toxicity to various agents [Recovered/Resolved]
  - Epilepsy [Recovered/Resolved]
